FAERS Safety Report 12429607 (Version 6)
Quarter: 2016Q3

REPORT INFORMATION
  Report Type: Report from Study
  Country: US (occurrence: US)
  Receive Date: 20160602
  Receipt Date: 20160908
  Transmission Date: 20161109
  Serious: Yes (Hospitalization, Other)
  Sender: FDA-Public Use
  Company Number: US-BAYER-2016-052101

PATIENT
  Age: 27 Year
  Sex: Female
  Weight: 45.35 kg

DRUGS (6)
  1. ADEMPAS [Suspect]
     Active Substance: RIOCIGUAT
     Indication: PULMONARY ARTERIAL HYPERTENSION
     Dosage: 2.5 MG, TID
     Route: 048
  2. ADEMPAS [Suspect]
     Active Substance: RIOCIGUAT
     Indication: PULMONARY ARTERIAL HYPERTENSION
     Dosage: 2.5 MG, TID
     Route: 048
  3. LETAIRIS [Concomitant]
     Active Substance: AMBRISENTAN
     Dosage: UNK
  4. ADEMPAS [Suspect]
     Active Substance: RIOCIGUAT
     Indication: PULMONARY ARTERIAL HYPERTENSION
     Dosage: 2.5 MG, TID
     Route: 048
  5. ADEMPAS [Suspect]
     Active Substance: RIOCIGUAT
     Indication: PULMONARY ARTERIAL HYPERTENSION
     Dosage: UNK
     Dates: start: 20150820
  6. REMODULIN [Suspect]
     Active Substance: TREPROSTINIL
     Dosage: UNK

REACTIONS (13)
  - Asthma [Unknown]
  - Injection site pain [Unknown]
  - Application site erythema [None]
  - Hospitalisation [None]
  - Injection site reaction [Unknown]
  - Flatulence [Unknown]
  - Sepsis [Unknown]
  - Emergency care [Unknown]
  - Wheezing [Unknown]
  - Infusion site cellulitis [Unknown]
  - Device related infection [None]
  - Application site pruritus [None]
  - Application site perspiration [None]

NARRATIVE: CASE EVENT DATE: 201605
